FAERS Safety Report 21862834 (Version 1)
Quarter: 2023Q1

REPORT INFORMATION
  Report Type: Spontaneous
  Country: US (occurrence: US)
  Receive Date: 20230114
  Receipt Date: 20230114
  Transmission Date: 20230417
  Serious: No
  Sender: FDA-Public Use
  Company Number: US-drreddys-SPO/USA/22/0158394

PATIENT
  Age: 71 Year
  Sex: Male

DRUGS (22)
  1. LENALIDOMIDE [Suspect]
     Active Substance: LENALIDOMIDE
     Indication: Plasma cell myeloma
     Dosage: ON DAYS 1-14 WITH 7 DAYS OFF
     Route: 048
  2. NARCAN LIQ 4MG/0.1ML [Concomitant]
     Indication: Product used for unknown indication
     Dosage: 4MG/0.1ML
  3. PREDNISONE [Concomitant]
     Active Substance: PREDNISONE
     Indication: Product used for unknown indication
  4. VENTOLIN HFA AER 108 (90) [Concomitant]
     Indication: Product used for unknown indication
     Dosage: HFA AER 108 (90
  5. AFRIN 12 HOU SOL 0.05 percent [Concomitant]
     Indication: Product used for unknown indication
     Dosage: 12 HOU SOL
  6. ALLOPURINOL [Concomitant]
     Active Substance: ALLOPURINOL
     Indication: Product used for unknown indication
  7. ALPRAZOLAM TAB  0.25MG [Concomitant]
     Indication: Product used for unknown indication
  8. ASPIRIN CHE 81MG [Concomitant]
     Indication: Product used for unknown indication
  9. DEXAMETHASONE [Concomitant]
     Active Substance: DEXAMETHASONE
     Indication: Product used for unknown indication
  10. FOLIC ACID TAB 1MG [Concomitant]
     Indication: Product used for unknown indication
  11. GABAPENTIN [Concomitant]
     Active Substance: GABAPENTIN
     Indication: Product used for unknown indication
  12. LOSARTAN POT TAB  50MG [Concomitant]
     Indication: Product used for unknown indication
  13. MAGNESIUM TAB 400MG [Concomitant]
     Indication: Product used for unknown indication
  14. METOPROLOL SUCCINATE [Concomitant]
     Active Substance: METOPROLOL SUCCINATE
     Indication: Product used for unknown indication
  15. MIRTAZAPINE TAB 15MG [Concomitant]
     Indication: Product used for unknown indication
  16. MULTIVITAMIN TAB [Concomitant]
     Indication: Product used for unknown indication
  17. ONDANSETRON [Concomitant]
     Active Substance: ONDANSETRON
     Indication: Product used for unknown indication
     Dosage: TBD
  18. OXYCODONE HC CAP 5MG [Concomitant]
     Indication: Product used for unknown indication
  19. SALINE NASAL SOL 0.65 percent [Concomitant]
     Indication: Product used for unknown indication
  20. TOBREX OIN 0.3 percent [Concomitant]
     Indication: Product used for unknown indication
  21. TYLENOL EXTR TAB 500MG [Concomitant]
     Indication: Product used for unknown indication
  22. VITAMIN B12 TBC 1000MCG [Concomitant]
     Indication: Product used for unknown indication

REACTIONS (4)
  - Somnolence [Unknown]
  - Fatigue [Unknown]
  - Erythema [Not Recovered/Not Resolved]
  - Product use issue [Unknown]
